FAERS Safety Report 17243927 (Version 1)
Quarter: 2020Q1

REPORT INFORMATION
  Report Type: Report from Study
  Country: US (occurrence: US)
  Receive Date: 20200107
  Receipt Date: 20200107
  Transmission Date: 20200409
  Serious: Yes (Other)
  Sender: FDA-Public Use
  Company Number: US-ACTELION-A-US2018-182996

PATIENT
  Age: 62 Year
  Sex: Female
  Weight: 69.39 kg

DRUGS (2)
  1. OPSUMIT [Suspect]
     Active Substance: MACITENTAN
     Indication: PULMONARY ARTERIAL HYPERTENSION
     Dosage: 10 MG, QD
     Route: 048
     Dates: start: 20181123
  2. TADALAFIL. [Concomitant]
     Active Substance: TADALAFIL

REACTIONS (10)
  - Swelling [Unknown]
  - Chromaturia [Unknown]
  - Peripheral swelling [Unknown]
  - Hepatic cirrhosis [Unknown]
  - Nasal congestion [Unknown]
  - Infection [Unknown]
  - Myalgia [Not Recovered/Not Resolved]
  - Hypotension [Unknown]
  - Polyp [Unknown]
  - Headache [Unknown]

NARRATIVE: CASE EVENT DATE: 20181124
